FAERS Safety Report 7126251-3 (Version None)
Quarter: 2010Q4

REPORT INFORMATION
  Report Type: 
  Country: None (occurrence: None)
  Receive Date: 20101129
  Receipt Date: 20101123
  Transmission Date: 20110411
  Serious: Yes (Hospitalization)
  Sender: FDA-Public Use
  Company Number: FR-BRISTOL-MYERS SQUIBB COMPANY-15405160

PATIENT
  Age: 81 Year
  Sex: Female

DRUGS (7)
  1. BUSPAR [Suspect]
     Indication: ANXIETY
     Dosage: 1DF=10MG TABLET 1.5/DAY
     Dates: start: 20101016, end: 20101019
  2. SERESTA [Concomitant]
     Dosage: 1DF=50MG 0.5/DAY
     Route: 048
  3. STILNOX [Concomitant]
     Route: 048
  4. TRANSIPEG [Concomitant]
     Route: 048
  5. MIRTAZAPINE [Concomitant]
     Dosage: MIRTAZAPINE ARROW
     Route: 048
  6. CALCIDOSE [Concomitant]
     Route: 048
  7. VITAMIN D [Concomitant]
     Route: 048

REACTIONS (3)
  - AGITATION [None]
  - CONFUSIONAL STATE [None]
  - NERVOUSNESS [None]
